FAERS Safety Report 23134309 (Version 1)
Quarter: 2023Q4

REPORT INFORMATION
  Report Type: Spontaneous
  Country: US (occurrence: None)
  Receive Date: 20231101
  Receipt Date: 20231101
  Transmission Date: 20240109
  Serious: Yes (Hospitalization)
  Sender: FDA-Public Use
  Company Number: None

PATIENT
  Sex: Male
  Weight: 108.9 kg

DRUGS (2)
  1. FLUOROURACIL [Suspect]
     Active Substance: FLUOROURACIL
     Dates: end: 20231009
  2. CISPLATIN [Suspect]
     Active Substance: CISPLATIN
     Dates: end: 20231009

REACTIONS (11)
  - Vomiting [None]
  - Complication associated with device [None]
  - Feeding intolerance [None]
  - Nausea [None]
  - Diarrhoea [None]
  - Hypophagia [None]
  - Throat irritation [None]
  - Injury associated with device [None]
  - Stomatitis [None]
  - Oral pain [None]
  - Neck pain [None]

NARRATIVE: CASE EVENT DATE: 20231019
